FAERS Safety Report 5219128-1 (Version None)
Quarter: 2007Q1

REPORT INFORMATION
  Report Type: 
  Country: None (occurrence: None)
  Receive Date: 20070125
  Receipt Date: 20070118
  Transmission Date: 20070707
  Serious: Yes (Hospitalization)
  Sender: FDA-Public Use
  Company Number: US-JNJFOC-20070104658

PATIENT
  Sex: Female
  Weight: 57.61 kg

DRUGS (12)
  1. INFLIXIMAB [Suspect]
     Indication: RHEUMATOID ARTHRITIS
     Route: 042
  2. ACETAMINOPHEN [Concomitant]
  3. FOSAMAX [Concomitant]
  4. METHOTREXATE [Concomitant]
  5. PLAQUENIL [Concomitant]
  6. MIACALCIN [Concomitant]
  7. CYTOTEC [Concomitant]
  8. DYAZIDE [Concomitant]
  9. DONNATOL [Concomitant]
  10. TOPROL-XL [Concomitant]
  11. CITRACEL [Concomitant]
  12. VITAMIN D [Concomitant]

REACTIONS (2)
  - ATRIAL FIBRILLATION [None]
  - LUNG INFILTRATION [None]
